FAERS Safety Report 21441225 (Version 4)
Quarter: 2025Q2

REPORT INFORMATION
  Report Type: Spontaneous
  Country: CA (occurrence: CA)
  Receive Date: 20221011
  Receipt Date: 20250404
  Transmission Date: 20250716
  Serious: Yes (Death, Other)
  Sender: PFIZER
  Company Number: CA-PFIZER INC-202201109828

PATIENT
  Age: 82 Year
  Sex: Female

DRUGS (15)
  1. XELJANZ [Suspect]
     Active Substance: TOFACITINIB CITRATE
     Indication: Rheumatoid arthritis
     Dosage: 5 MG, 2X/DAY
     Route: 048
     Dates: start: 20190622
  2. HYDROXYCHLOROQUINE [Concomitant]
     Active Substance: HYDROXYCHLOROQUINE
  3. AMLODIPINE [Concomitant]
     Active Substance: AMLODIPINE BESYLATE
  4. BETAHISTINE [Concomitant]
     Active Substance: BETAHISTINE
  5. LOSARTAN [Concomitant]
     Active Substance: LOSARTAN
  6. CELEBREX [Concomitant]
     Active Substance: CELECOXIB
  7. PANTOPRAZOLE [Concomitant]
     Active Substance: PANTOPRAZOLE
  8. SYNTHROID [Concomitant]
     Active Substance: LEVOTHYROXINE SODIUM
  9. ALENDRONATE [Concomitant]
     Active Substance: ALENDRONATE SODIUM
  10. TYLENOL [Concomitant]
     Active Substance: ACETAMINOPHEN
  11. IRON [Concomitant]
     Active Substance: IRON
  12. GRAVOL [Concomitant]
     Active Substance: DIMENHYDRINATE
  13. POTASSIUM [Concomitant]
     Active Substance: POTASSIUM
  14. CALCIUM [Concomitant]
     Active Substance: CALCIUM
  15. HYDROMORPHONE [Concomitant]
     Active Substance: HYDROMORPHONE

REACTIONS (4)
  - Death [Fatal]
  - Adenocarcinoma of colon [Fatal]
  - Upper limb fracture [Not Recovered/Not Resolved]
  - Drug ineffective [Unknown]

NARRATIVE: CASE EVENT DATE: 20220101
